FAERS Safety Report 6286607-8 (Version None)
Quarter: 2009Q3

REPORT INFORMATION
  Report Type: 
  Country: None (occurrence: None)
  Receive Date: 20090728
  Receipt Date: 20090716
  Transmission Date: 20100115
  Serious: Yes (Other)
  Sender: FDA-Public Use
  Company Number: PHEH2007US15450

PATIENT
  Sex: Male
  Weight: 89.796 kg

DRUGS (5)
  1. ZOMETA [Suspect]
     Indication: METASTASES TO BONE
     Dosage: 1 MG, QMO
     Dates: start: 20040401, end: 20060510
  2. LUPRON [Concomitant]
     Dosage: Q3MO
  3. CASODEX [Concomitant]
     Dosage: UNK
  4. ZOCOR [Concomitant]
  5. TOPROL-XL [Concomitant]

REACTIONS (18)
  - ANGIOPLASTY [None]
  - ANXIETY [None]
  - BONE DISORDER [None]
  - DECREASED INTEREST [None]
  - DENTAL CARIES [None]
  - DENTAL OPERATION [None]
  - ENDODONTIC PROCEDURE [None]
  - GINGIVAL HYPERPLASIA [None]
  - INJURY [None]
  - JOINT EFFUSION [None]
  - MASTICATION DISORDER [None]
  - OEDEMA [None]
  - ORAL PAIN [None]
  - OSTEOMYELITIS [None]
  - OSTEONECROSIS [None]
  - PAIN [None]
  - STENT PLACEMENT [None]
  - SWELLING [None]
